FAERS Safety Report 8782634 (Version 2)
Quarter: 2013Q2

REPORT INFORMATION
  Report Type: Spontaneous
  Country: US (occurrence: US)
  Receive Date: 20120913
  Receipt Date: 20130402
  Transmission Date: 20140414
  Serious: No
  Sender: FDA-Public Use
  Company Number: US-ASTRAZENECA-2012SE18860

PATIENT
  Age: 37 Year
  Sex: Male

DRUGS (1)
  1. TOPROL XL [Suspect]
     Indication: CARDIAC DISORDER
     Route: 048

REACTIONS (4)
  - Glaucoma [Unknown]
  - Adverse event [Unknown]
  - Visual impairment [Unknown]
  - Sluggishness [Unknown]
